FAERS Safety Report 5127380-6 (Version None)
Quarter: 2006Q4

REPORT INFORMATION
  Report Type: 
  Country: None (occurrence: None)
  Receive Date: 20061010
  Receipt Date: 20060925
  Transmission Date: 20070319
  Serious: Yes (Other)
  Sender: FDA-Public Use
  Company Number: GXKR2006PL06016

PATIENT
  Sex: Male

DRUGS (1)
  1. AMOKSIKLAV (NGX)(AMOXICILLIN, CLAVULANATE) TABLET [Suspect]
     Dosage: ORAL
     Route: 048
     Dates: start: 20060901, end: 20060901

REACTIONS (6)
  - DIARRHOEA [None]
  - DIZZINESS [None]
  - DRY MOUTH [None]
  - MUSCLE SPASMS [None]
  - POLLAKIURIA [None]
  - POLYDIPSIA [None]
